FAERS Safety Report 6880307-9 (Version None)
Quarter: 2010Q3

REPORT INFORMATION
  Report Type: 
  Country: None (occurrence: None)
  Receive Date: 20100728
  Receipt Date: 20100726
  Transmission Date: 20110219
  Serious: Yes (Hospitalization)
  Sender: FDA-Public Use
  Company Number: US-WYE-H16430410

PATIENT
  Age: 67 Year
  Sex: Male

DRUGS (6)
  1. TEMSIROLIMUS [Suspect]
     Indication: LARYNGEAL CANCER
     Route: 042
     Dates: start: 20100715, end: 20100715
  2. TEMSIROLIMUS [Suspect]
     Indication: HEAD AND NECK CANCER
  3. CARBOPLATIN [Suspect]
     Indication: LARYNGEAL CANCER
     Dosage: AUC 5
     Route: 042
     Dates: start: 20100715, end: 20100715
  4. CARBOPLATIN [Suspect]
     Indication: HEAD AND NECK CANCER
  5. PACLITAXEL [Suspect]
     Indication: LARYNGEAL CANCER
     Route: 042
     Dates: start: 20100715, end: 20100715
  6. PACLITAXEL [Suspect]
     Indication: HEAD AND NECK CANCER

REACTIONS (2)
  - DIARRHOEA [None]
  - RECTAL HAEMORRHAGE [None]
